FAERS Safety Report 21626913 (Version 1)
Quarter: 2022Q4

REPORT INFORMATION
  Report Type: Spontaneous
  Country: PL (occurrence: PL)
  Receive Date: 20221122
  Receipt Date: 20221122
  Transmission Date: 20230113
  Serious: Yes (Death, Hospitalization)
  Sender: FDA-Public Use
  Company Number: PL-STRIDES ARCOLAB LIMITED-2022SP015464

PATIENT
  Age: 71 Year
  Sex: Male

DRUGS (1)
  1. METHOTREXATE [Suspect]
     Active Substance: METHOTREXATE
     Indication: Product used for unknown indication
     Dosage: UNK, PRESCRIBED WEEKLY DOSE WAS ADMINISTERED DAILY
     Route: 065

REACTIONS (12)
  - Pancytopenia [Fatal]
  - Acute kidney injury [Fatal]
  - Haemorrhage [Fatal]
  - Jaundice [Fatal]
  - Petechiae [Fatal]
  - Toxicity to various agents [Fatal]
  - Incorrect dosage administered [Fatal]
  - Overdose [Fatal]
  - Toxic epidermal necrolysis [Fatal]
  - Skin exfoliation [Fatal]
  - Erythema [Fatal]
  - Septic shock [Fatal]
